FAERS Safety Report 4333967-0 (Version None)
Quarter: 2004Q2

REPORT INFORMATION
  Report Type: 
  Country: None (occurrence: None)
  Receive Date: 20040402
  Receipt Date: 20040323
  Transmission Date: 20050107
  Serious: Yes (Life-Threatening, Hospitalization, Other)
  Sender: FDA-Public Use
  Company Number: 2004015549

PATIENT
  Age: 48 Year
  Sex: Female

DRUGS (8)
  1. ZOLOFT [Suspect]
     Indication: ANXIETY
     Dosage: 150 MG (DAILY), ORAL
     Route: 048
     Dates: start: 20020227, end: 20040202
  2. ZOLOFT [Suspect]
     Indication: DEPRESSION
     Dosage: 150 MG (DAILY), ORAL
     Route: 048
     Dates: start: 20020227, end: 20040202
  3. ALL OTHER THERAPEUTIC PRODUCTS [Concomitant]
  4. SERETIDE MITE (FLUTICASONE PROPIONATE, SALMETEROL XINAFOATE) [Concomitant]
  5. MONTELUKAST SODIUM (MONTELUKAST SODIUM) [Concomitant]
  6. CLONAZEPAM [Concomitant]
  7. SALBUTAMOL (SALBUTAMOL) [Concomitant]
  8. POTASSIUM CHLORIDE [Concomitant]

REACTIONS (9)
  - AGITATION [None]
  - ANXIETY [None]
  - ASTHMA [None]
  - BLOOD POTASSIUM DECREASED [None]
  - DIARRHOEA [None]
  - NEUROPATHY [None]
  - NEUROPATHY PERIPHERAL [None]
  - PRURITUS [None]
  - RENAL FAILURE [None]
